FAERS Safety Report 8823474 (Version 1)
Quarter: 2012Q4

REPORT INFORMATION
  Report Type: 
  Country: US (occurrence: US)
  Receive Date: 20121003
  Receipt Date: 20121003
  Transmission Date: 20130627
  Serious: No
  Sender: FDA-Public Use
  Company Number: US-009507513-1210USA000891

PATIENT
  Sex: Male

DRUGS (4)
  1. JANUVIA [Suspect]
     Dosage: 100 mg, UNK
     Route: 048
  2. JANUVIA [Suspect]
     Dosage: 50 mg, UNK
     Route: 048
  3. GLIPIZIDE [Suspect]
  4. LANTUS [Suspect]
     Dosage: 1 DF, qd
     Route: 058

REACTIONS (1)
  - Blood glucose abnormal [Unknown]
